FAERS Safety Report 17986921 (Version 3)
Quarter: 2020Q4

REPORT INFORMATION
  Report Type: Report from Study
  Country: US (occurrence: US)
  Receive Date: 20200707
  Receipt Date: 20201110
  Transmission Date: 20210113
  Serious: No
  Sender: FDA-Public Use
  Company Number: NVSC2020US186882

PATIENT
  Age: 37 Year
  Sex: Female
  Weight: 102.04 kg

DRUGS (2)
  1. GILENYA [Suspect]
     Active Substance: FINGOLIMOD HYDROCHLORIDE
     Dosage: 0.5 MG
     Route: 048
  2. GILENYA [Suspect]
     Active Substance: FINGOLIMOD HYDROCHLORIDE
     Indication: MULTIPLE SCLEROSIS
     Dosage: 0.5 MG, QOD
     Route: 048

REACTIONS (11)
  - Fatigue [Unknown]
  - Product prescribing error [Unknown]
  - Dizziness [Unknown]
  - Migraine [Unknown]
  - Headache [Unknown]
  - Insomnia [Unknown]
  - Weight decreased [Unknown]
  - Vision blurred [Unknown]
  - Visual impairment [Unknown]
  - Temperature intolerance [Unknown]
  - Bone pain [Unknown]

NARRATIVE: CASE EVENT DATE: 202001
